FAERS Safety Report 4383198-3 (Version None)
Quarter: 2004Q2

REPORT INFORMATION
  Report Type: 
  Country: None (occurrence: None)
  Receive Date: 20040623
  Receipt Date: 20040604
  Transmission Date: 20050107
  Serious: Yes (Other)
  Sender: FDA-Public Use
  Company Number: PHNU2004DE02032

PATIENT
  Sex: Male
  Weight: 70 kg

DRUGS (8)
  1. DESFERAL [Suspect]
     Indication: HAEMOSIDEROSIS
     Dosage: .5 G, QD
     Route: 058
     Dates: start: 20040201, end: 20040501
  2. SANDIMMUNE [Suspect]
     Indication: APLASTIC ANAEMIA
     Dosage: 600MG/DAY
     Route: 048
  3. SANDIMMUNE [Suspect]
     Dosage: 225MG/DAY
     Route: 048
  4. SANDIMMUNE [Suspect]
     Dosage: VARYING
     Route: 048
  5. NITROLINGUAL [Concomitant]
  6. BISOPROLOL [Concomitant]
     Dosage: 5 MG, QD
     Route: 048
  7. GLYBURIDE [Concomitant]
     Dosage: 3.5 MG, QD
     Route: 048
  8. OMEPRAZOLE [Concomitant]
     Dosage: 40 MG, QD
     Route: 048

REACTIONS (3)
  - ANGINA PECTORIS [None]
  - DRUG EFFECT DECREASED [None]
  - SERUM FERRITIN INCREASED [None]
